FAERS Safety Report 20540427 (Version 1)
Quarter: 2022Q1

REPORT INFORMATION
  Report Type: Report from Study
  Country: DE (occurrence: DE)
  Receive Date: 20220302
  Receipt Date: 20220302
  Transmission Date: 20220424
  Serious: Yes (Death, Other)
  Sender: FDA-Public Use
  Company Number: DE-JNJFOC-20211155656

PATIENT

DRUGS (17)
  1. DARZALEX [Suspect]
     Active Substance: DARATUMUMAB
     Indication: Plasma cell myeloma
     Dosage: ON DAYS 1,8
     Route: 042
  2. VELCADE [Suspect]
     Active Substance: BORTEZOMIB
     Indication: Plasma cell myeloma
     Route: 065
  3. DOXORUBICIN HYDROCHLORIDE [Suspect]
     Active Substance: DOXORUBICIN HYDROCHLORIDE
     Indication: Plasma cell myeloma
     Dosage: OVER 60 MINUTES ON DAYS 4-7
     Route: 042
  4. DEXAMETHASONE [Suspect]
     Active Substance: DEXAMETHASONE
     Indication: Plasma cell myeloma
     Dosage: DAY-1,2,8,9
     Route: 048
  5. THALIDOMIDE [Suspect]
     Active Substance: THALIDOMIDE
     Indication: Plasma cell myeloma
     Dosage: AT BEDTIME ON DAYS 1-21
     Route: 048
  6. CARFILZOMIB [Suspect]
     Active Substance: CARFILZOMIB
     Indication: Plasma cell myeloma
     Dosage: 20/27 MG/M2 OVER 30 MINUTES
     Route: 042
  7. CISPLATIN [Suspect]
     Active Substance: CISPLATIN
     Indication: Plasma cell myeloma
     Dosage: OVER 60 MINUTES ON DAYS 4-7
     Route: 042
  8. CYCLOPHOSPHAMIDE [Suspect]
     Active Substance: CYCLOPHOSPHAMIDE
     Indication: Plasma cell myeloma
     Dosage: OVER 60 MINUTES ON DAYS 4-7
     Route: 042
  9. ETOPOSIDE [Suspect]
     Active Substance: ETOPOSIDE
     Indication: Plasma cell myeloma
     Dosage: OVER 60 MINUTES ON DAYS 4-7
     Route: 042
  10. LENALIDOMIDE [Suspect]
     Active Substance: LENALIDOMIDE
     Indication: Plasma cell myeloma
     Route: 065
  11. ACETAMINOPHEN [Concomitant]
     Active Substance: ACETAMINOPHEN
     Indication: Prophylaxis
     Route: 065
  12. FAMOTIDINE [Concomitant]
     Active Substance: FAMOTIDINE
     Indication: Prophylaxis
     Route: 065
  13. CLEMASTINE [Concomitant]
     Active Substance: CLEMASTINE
     Indication: Plasma cell myeloma
     Route: 065
  14. ENOXAPARIN [Concomitant]
     Active Substance: ENOXAPARIN
     Indication: Thrombosis prophylaxis
     Route: 058
  15. ASPIRIN [Concomitant]
     Active Substance: ASPIRIN
     Indication: Thrombosis prophylaxis
     Route: 048
  16. COTRIMOXAZOLE [Concomitant]
     Active Substance: SULFAMETHOXAZOLE\TRIMETHOPRIM
     Indication: Infection prophylaxis
     Route: 048
  17. ACYCLOVIR [Concomitant]
     Active Substance: ACYCLOVIR
     Indication: Antiviral prophylaxis
     Route: 048

REACTIONS (24)
  - Febrile neutropenia [Fatal]
  - Pulmonary oedema [Unknown]
  - Syncope [Unknown]
  - White blood cell count decreased [Unknown]
  - Pneumonia [Unknown]
  - Anaemia [Unknown]
  - Neutrophil count decreased [Unknown]
  - Platelet count decreased [Unknown]
  - Diarrhoea [Unknown]
  - Influenza [Unknown]
  - Urinary tract infection [Unknown]
  - Cardiac failure [Unknown]
  - Renal failure [Unknown]
  - Tumour lysis syndrome [Unknown]
  - Mucosal inflammation [Unknown]
  - Intervertebral discitis [Unknown]
  - Haemorrhage intracranial [Unknown]
  - Oesophageal infection [Unknown]
  - Device related infection [Unknown]
  - Oral herpes [Unknown]
  - Seizure [Unknown]
  - Congestive hepatopathy [Unknown]
  - Pleural effusion [Unknown]
  - Polyneuropathy [Unknown]
